FAERS Safety Report 8259875-0 (Version None)
Quarter: 2012Q2

REPORT INFORMATION
  Report Type: 
  Country: None (occurrence: None)
  Receive Date: 20120404
  Receipt Date: 20120326
  Transmission Date: 20120825
  Serious: Yes (Hospitalization)
  Sender: FDA-Public Use
  Company Number: JP-GLAXOSMITHKLINE-B0645360A

PATIENT
  Sex: Male

DRUGS (1)
  1. VALTREX [Suspect]
     Indication: VARICELLA
     Dosage: 3000MG PER DAY
     Route: 048
     Dates: start: 20100330, end: 20100401

REACTIONS (6)
  - DEHYDRATION [None]
  - RENAL IMPAIRMENT [None]
  - ENCEPHALOPATHY [None]
  - EATING DISORDER [None]
  - DISORIENTATION [None]
  - SPEECH DISORDER [None]
